FAERS Safety Report 10405499 (Version 1)
Quarter: 2014Q3

REPORT INFORMATION
  Report Type: Spontaneous
  Country: US (occurrence: None)
  Receive Date: 20140822
  Receipt Date: 20140822
  Transmission Date: 20150326
  Serious: Yes (Death, Hospitalization)
  Sender: FDA-Public Use
  Company Number: None

PATIENT
  Age: 62 Year
  Sex: Female
  Weight: 89 kg

DRUGS (2)
  1. CYTARABINE. [Suspect]
     Active Substance: CYTARABINE
     Dates: end: 20140808
  2. DAUNORUBICIN [Suspect]
     Active Substance: DAUNORUBICIN
     Dates: end: 20140803

REACTIONS (14)
  - Device related infection [None]
  - Septic shock [None]
  - Dialysis [None]
  - Renal failure acute [None]
  - Shock [None]
  - Serratia test positive [None]
  - Atrial fibrillation [None]
  - Cardiac failure [None]
  - Hypotension [None]
  - Bacteraemia [None]
  - Pneumonia [None]
  - Metabolic acidosis [None]
  - Fluid overload [None]
  - Pulmonary oedema [None]

NARRATIVE: CASE EVENT DATE: 20140811
